FAERS Safety Report 22173551 (Version 1)
Quarter: 2023Q2

REPORT INFORMATION
  Report Type: Spontaneous
  Country: US (occurrence: None)
  Receive Date: 20230404
  Receipt Date: 20230404
  Transmission Date: 20230721
  Serious: No
  Sender: FDA-Public Use
  Company Number: None

PATIENT
  Age: 78 Year
  Sex: Female
  Weight: 79.38 kg

DRUGS (1)
  1. SIMPONI ARIA [Suspect]
     Active Substance: GOLIMUMAB
     Indication: Rheumatoid arthritis
     Dosage: INFUSE 161.4MG INTRAVENOUSLY OVER 30 MINUTES AT WEEK 0 AND WEEK 4 AS DIRECTED?
     Route: 042
     Dates: start: 202205

REACTIONS (2)
  - Chemotherapy [None]
  - Therapy cessation [None]
